FAERS Safety Report 6497252-3 (Version None)
Quarter: 2009Q4

REPORT INFORMATION
  Report Type: 
  Country: None (occurrence: None)
  Receive Date: 20091215
  Receipt Date: 20090824
  Transmission Date: 20100525
  Serious: No
  Sender: FDA-Public Use
  Company Number: A0798257A

PATIENT
  Age: 84 Year
  Sex: Male

DRUGS (9)
  1. AVODART [Suspect]
     Dosage: .5MG PER DAY
     Route: 048
     Dates: start: 20090301
  2. ATENOLOL [Concomitant]
  3. SIMVASTATIN [Concomitant]
  4. PLAVIX [Concomitant]
  5. LISINOPRIL [Concomitant]
  6. BABY ASPIRIN [Concomitant]
  7. MULTI-VITAMIN [Concomitant]
  8. VITAMIN D3 [Concomitant]
  9. FLOMAX [Concomitant]

REACTIONS (4)
  - BREAST INDURATION [None]
  - BREAST SWELLING [None]
  - BREAST TENDERNESS [None]
  - NIPPLE PAIN [None]
